FAERS Safety Report 6761178-8 (Version None)
Quarter: 2010Q2

REPORT INFORMATION
  Report Type: 
  Country: None (occurrence: None)
  Receive Date: 20100608
  Receipt Date: 20100603
  Transmission Date: 20101027
  Serious: Yes (Other)
  Sender: FDA-Public Use
  Company Number: US-B.I. PHARMACEUTICALS,INC./RIDGEFIELD-2010-BP-06288BP

PATIENT
  Sex: Male
  Weight: 71.818 kg

DRUGS (8)
  1. FLOMAX [Suspect]
     Indication: PROSTATIC DISORDER
     Route: 048
     Dates: end: 20091201
  2. ANDROGEL [Suspect]
     Indication: BLOOD TESTOSTERONE DECREASED
     Dosage: 5 G
     Dates: start: 20000101, end: 20060101
  3. ANDROGEL [Suspect]
     Dosage: 10 G
     Dates: start: 20060101
  4. ANDROGEL [Suspect]
     Dosage: 15 G
  5. ANDROGEL [Suspect]
     Dosage: 10 G
     Dates: end: 20100514
  6. ANDROGEL [Suspect]
     Dosage: 15 G
     Dates: start: 20100515
  7. TERAZOSIN HCL [Concomitant]
     Indication: PROSTATIC DISORDER
     Dates: start: 20091201
  8. FOSAMAX [Concomitant]

REACTIONS (3)
  - BLOOD TESTOSTERONE ABNORMAL [None]
  - CATARACT [None]
  - FLOPPY IRIS SYNDROME [None]
